FAERS Safety Report 7125750-8 (Version None)
Quarter: 2010Q4

REPORT INFORMATION
  Report Type: 
  Country: None (occurrence: None)
  Receive Date: 20101129
  Receipt Date: 20101119
  Transmission Date: 20110411
  Serious: Yes (Other)
  Sender: FDA-Public Use
  Company Number: B0682960A

PATIENT
  Sex: Male

DRUGS (1)
  1. ALLERMIST [Suspect]
     Dosage: 1IUAX PER DAY
     Route: 045
     Dates: start: 20101027

REACTIONS (2)
  - COLOUR BLINDNESS [None]
  - RHINORRHOEA [None]
